FAERS Safety Report 24128151 (Version 2)
Quarter: 2024Q4

REPORT INFORMATION
  Report Type: Report from Study
  Country: CA (occurrence: CA)
  Receive Date: 20240723
  Receipt Date: 20241016
  Transmission Date: 20250114
  Serious: Yes (Other)
  Sender: JOHNSON AND JOHNSON
  Company Number: CA-JNJFOC-20240609782

PATIENT
  Age: 50 Year
  Sex: Male
  Weight: 116 kg

DRUGS (1)
  1. REMICADE [Suspect]
     Active Substance: INFLIXIMAB
     Indication: Crohn^s disease
     Dosage: PAM76011; 31-DEC-2026?24C027; 28-FEB-2027
     Route: 041

REACTIONS (2)
  - Nephrolithiasis [Not Recovered/Not Resolved]
  - Off label use [Unknown]

NARRATIVE: CASE EVENT DATE: 20240602
